FAERS Safety Report 9952844 (Version 1)
Quarter: 2014Q1

REPORT INFORMATION
  Report Type: Report from Study
  Country: US (occurrence: US)
  Receive Date: 20140304
  Receipt Date: 20140304
  Transmission Date: 20141002
  Serious: No
  Sender: FDA-Public Use
  Company Number: US-ABBVIE-13P-163-1075045-00

PATIENT
  Age: 36 Year
  Sex: Male

DRUGS (8)
  1. HUMIRA [Suspect]
     Indication: PSORIASIS
     Dates: start: 20130312
  2. HUMIRA [Suspect]
     Indication: PSORIATIC ARTHROPATHY
  3. ABILIFY [Concomitant]
     Indication: DEPRESSION
     Route: 048
  4. TEMAZEPAM [Concomitant]
     Indication: INSOMNIA
     Dosage: AT BEDTIME
     Route: 048
  5. VENLAFAXINE [Concomitant]
     Indication: ANXIETY
     Dosage: DAILY
     Route: 048
  6. LISINOPRIL [Concomitant]
     Indication: BLOOD PRESSURE
     Dosage: DAILY
     Route: 048
  7. FOLIC ACID [Concomitant]
     Indication: GASTRIC DISORDER
     Dosage: DAILY
     Route: 048
  8. OMEPRAZOLE [Concomitant]
     Indication: PRODUCT USED FOR UNKNOWN INDICATION
     Dosage: DAILY
     Route: 048

REACTIONS (6)
  - Fatigue [Recovered/Resolved]
  - Nausea [Not Recovered/Not Resolved]
  - Injection site pain [Not Recovered/Not Resolved]
  - Injection site bruising [Recovered/Resolved]
  - Weight decreased [Not Recovered/Not Resolved]
  - Poor quality sleep [Unknown]
